FAERS Safety Report 8389101-3 (Version None)
Quarter: 2012Q2

REPORT INFORMATION
  Report Type: 
  Country: None (occurrence: None)
  Receive Date: 20120528
  Receipt Date: 20120521
  Transmission Date: 20120825
  Serious: Yes (Death, Hospitalization, Other)
  Sender: FDA-Public Use
  Company Number: PHHY2012FR043539

PATIENT
  Sex: Female

DRUGS (2)
  1. GLEEVEC [Suspect]
     Route: 048
     Dates: start: 20090801, end: 20110801
  2. GLEEVEC [Suspect]
     Indication: CHRONIC MYELOID LEUKAEMIA
     Route: 048
     Dates: end: 20070101

REACTIONS (21)
  - EXTENSOR PLANTAR RESPONSE [None]
  - COMA SCALE ABNORMAL [None]
  - AGITATION [None]
  - AGGRESSION [None]
  - BRAIN HERNIATION [None]
  - MOVEMENT DISORDER [None]
  - PYRAMIDAL TRACT SYNDROME [None]
  - MUTISM [None]
  - MEMORY IMPAIRMENT [None]
  - VOMITING [None]
  - THROMBOPHLEBITIS [None]
  - DEMENTIA [None]
  - DISORIENTATION [None]
  - DISTURBANCE IN ATTENTION [None]
  - QUADRIPARESIS [None]
  - NEUROLOGICAL DECOMPENSATION [None]
  - MENINGORRHAGIA [None]
  - BLOOD PRESSURE SYSTOLIC INCREASED [None]
  - SUBARACHNOID HAEMORRHAGE [None]
  - CEREBRAL HAEMATOMA [None]
  - APHASIA [None]
